FAERS Safety Report 8597618-1 (Version None)
Quarter: 2012Q3

REPORT INFORMATION
  Report Type: 
  Country: None (occurrence: None)
  Receive Date: 20120816
  Receipt Date: 20120809
  Transmission Date: 20120928
  Serious: Yes (Other)
  Sender: FDA-Public Use
  Company Number: 2012SP002243

PATIENT
  Age: 61 Year
  Sex: Male

DRUGS (2)
  1. HALDOL [Concomitant]
     Dates: end: 20111201
  2. LATUDA [Suspect]
     Indication: SCHIZOPHRENIA, PARANOID TYPE
     Route: 048
     Dates: start: 20111208

REACTIONS (3)
  - PHYSICAL ASSAULT [None]
  - PSYCHIATRIC DECOMPENSATION [None]
  - AGGRESSION [None]
